FAERS Safety Report 8432690-0 (Version None)
Quarter: 2012Q2

REPORT INFORMATION
  Report Type: 
  Country: None (occurrence: None)
  Receive Date: 20120613
  Receipt Date: 20120605
  Transmission Date: 20120825
  Serious: No
  Sender: FDA-Public Use
  Company Number: US-B.I. PHARMACEUTICALS,INC./RIDGEFIELD-2012-BP-10293BP

PATIENT
  Sex: Male
  Weight: 125.65 kg

DRUGS (9)
  1. SPIRIVA [Suspect]
     Indication: DYSPNOEA
  2. LABETALOL HYDROCHLORIDE [Concomitant]
  3. SYMBICORT [Concomitant]
  4. SPIRIVA [Suspect]
     Indication: CHRONIC OBSTRUCTIVE PULMONARY DISEASE
     Route: 055
     Dates: end: 20120501
  5. ALBUTEROL [Concomitant]
  6. FLOMAX [Concomitant]
  7. PRAVASTATIN [Concomitant]
  8. COMTAN [Concomitant]
  9. LASIX [Concomitant]

REACTIONS (1)
  - COORDINATION ABNORMAL [None]
